FAERS Safety Report 5987367-8 (Version None)
Quarter: 2008Q4

REPORT INFORMATION
  Report Type: 
  Country: None (occurrence: None)
  Receive Date: 20081209
  Receipt Date: 20081128
  Transmission Date: 20090506
  Serious: Yes (Other)
  Sender: FDA-Public Use
  Company Number: PHHY2008FR30301

PATIENT

DRUGS (2)
  1. TASIGNA [Suspect]
     Dosage: 800 MG DAILY
  2. CORTICOSTEROIDS [Concomitant]

REACTIONS (5)
  - ALOPECIA [None]
  - PAIN [None]
  - PAIN OF SKIN [None]
  - PHLEBITIS SUPERFICIAL [None]
  - TRANSAMINASES INCREASED [None]
